FAERS Safety Report 18629759 (Version 1)
Quarter: 2020Q4

REPORT INFORMATION
  Report Type: Spontaneous
  Country: US (occurrence: US)
  Receive Date: 20201217
  Receipt Date: 20201217
  Transmission Date: 20210114
  Serious: Yes (Hospitalization)
  Sender: FDA-Public Use
  Company Number: US-TEVA-2020-US-1858163

PATIENT
  Age: 31 Year
  Sex: Female

DRUGS (23)
  1. PROGESTERONE. [Suspect]
     Active Substance: PROGESTERONE
     Indication: INFERTILITY
     Dosage: DOSAGES AND FORMULATION NOT STATED
     Route: 065
     Dates: start: 20181118
  2. ENOXAPARIN [Suspect]
     Active Substance: ENOXAPARIN
     Indication: THROMBOSIS PROPHYLAXIS
     Route: 065
  3. VENLAFAXINE [Suspect]
     Active Substance: VENLAFAXINE HYDROCHLORIDE
     Indication: PRODUCT USED FOR UNKNOWN INDICATION
     Route: 065
  4. FOLLISTIM [Suspect]
     Active Substance: FOLLITROPIN
     Indication: INFERTILITY
     Route: 065
     Dates: start: 201809
  5. BROMOCRIPTINE [Suspect]
     Active Substance: BROMOCRIPTINE
     Dosage: 10 MILLIGRAM DAILY;
     Route: 065
  6. METHADONE [Suspect]
     Active Substance: METHADONE HYDROCHLORIDE
     Dosage: 60 MILLIGRAM DAILY;
     Route: 065
  7. IRON [Suspect]
     Active Substance: IRON
     Indication: DRUG THERAPY
     Route: 041
  8. METHADONE [Suspect]
     Active Substance: METHADONE HYDROCHLORIDE
     Indication: BREAST PAIN
     Dosage: INITIAL DOSE NOT STATED
     Route: 065
  9. PROGESTERONE. [Suspect]
     Active Substance: PROGESTERONE
     Indication: INFERTILITY
     Route: 067
  10. GANIRELIX [Suspect]
     Active Substance: GANIRELIX
     Indication: INFERTILITY
     Route: 065
     Dates: start: 201809
  11. HYDROMORPHONE [Suspect]
     Active Substance: HYDROMORPHONE
     Indication: BREAST PAIN
     Route: 065
  12. MENOPUR [Suspect]
     Active Substance: FOLLITROPIN\LUTEINIZING HORMONE
     Indication: INFERTILITY
     Route: 065
     Dates: start: 201809
  13. FSH [Suspect]
     Active Substance: FOLLITROPIN
     Indication: INFERTILITY
     Route: 065
     Dates: start: 201809
  14. TYLENOL [Suspect]
     Active Substance: ACETAMINOPHEN
     Indication: BREAST PAIN
     Route: 065
  15. LETROZOLE. [Concomitant]
     Active Substance: LETROZOLE
     Indication: DRUG THERAPY
     Route: 065
     Dates: start: 20180322
  16. ESTRADIOL. [Suspect]
     Active Substance: ESTRADIOL
     Indication: INFERTILITY
     Route: 065
     Dates: start: 201810
  17. BROMOCRIPTINE [Suspect]
     Active Substance: BROMOCRIPTINE
     Dosage: 20 MILLIGRAM DAILY;
     Route: 065
  18. BETAMETHASONE. [Suspect]
     Active Substance: BETAMETHASONE
     Indication: DRUG THERAPY
     Route: 065
  19. CITALOPRAM [Suspect]
     Active Substance: CITALOPRAM HYDROBROMIDE
     Indication: PRODUCT USED FOR UNKNOWN INDICATION
     Route: 065
  20. MAGNESIUM [Suspect]
     Active Substance: MAGNESIUM
     Indication: PRODUCT USED FOR UNKNOWN INDICATION
     Route: 065
  21. BROMOCRIPTINE [Suspect]
     Active Substance: BROMOCRIPTINE
     Indication: BREAST ENLARGEMENT
     Dosage: 5 MILLIGRAM DAILY;
     Route: 065
  22. CABERGOLINE. [Suspect]
     Active Substance: CABERGOLINE
     Indication: BREAST ENLARGEMENT
     Route: 065
  23. OXYCODONE [Suspect]
     Active Substance: OXYCODONE
     Indication: BREAST PAIN
     Route: 065

REACTIONS (11)
  - Breast enlargement [Recovered/Resolved]
  - Hallucination, visual [Unknown]
  - Delirium [Unknown]
  - Panic disorder [Unknown]
  - Fatigue [Unknown]
  - Ulcer [Recovered/Resolved]
  - Anxiety [Unknown]
  - Haemorrhage [Recovered/Resolved]
  - Maternal exposure during pregnancy [Unknown]
  - Live birth [Unknown]
  - Breast injury [Recovered/Resolved]
